FAERS Safety Report 17684920 (Version 1)
Quarter: 2020Q2

REPORT INFORMATION
  Report Type: Spontaneous
  Country: US (occurrence: US)
  Receive Date: 20200420
  Receipt Date: 20200420
  Transmission Date: 20200714
  Serious: No
  Sender: FDA-Public Use
  Company Number: US-EPIC PHARMA LLC-2019EPC00277

PATIENT
  Age: 86 Year
  Sex: Female
  Weight: 47.17 kg

DRUGS (2)
  1. SULINDAC. [Suspect]
     Active Substance: SULINDAC
     Indication: CHONDROCALCINOSIS PYROPHOSPHATE
     Dosage: 200 MG, IN THE MORNING AS NEEDED
     Route: 048
     Dates: start: 2019
  2. LIPITOR [Concomitant]
     Active Substance: ATORVASTATIN CALCIUM
     Dosage: 10 MG, 1X/DAY

REACTIONS (4)
  - Urinary tract infection [Not Recovered/Not Resolved]
  - Bladder prolapse [Not Recovered/Not Resolved]
  - Intentional product misuse [Not Recovered/Not Resolved]
  - Nocturia [Not Recovered/Not Resolved]

NARRATIVE: CASE EVENT DATE: 201908
